FAERS Safety Report 4801094-1 (Version None)
Quarter: 2005Q4

REPORT INFORMATION
  Report Type: 
  Country: None (occurrence: None)
  Receive Date: 20051011
  Receipt Date: 20050929
  Transmission Date: 20060501
  Serious: Yes (Other)
  Sender: FDA-Public Use
  Company Number: GBWYE868329JUL05

PATIENT
  Age: 56 Year
  Sex: Female

DRUGS (11)
  1. METHOTREXATE [Suspect]
  2. AUGMENTIN '125' [Suspect]
  3. CO-DYDRAMOL (DIHYDROCODEINE BITARTRATE/PARACETAMOL, , 0) [Suspect]
  4. FLUOXETINE [Suspect]
  5. HUMIRA [Suspect]
     Dosage: PARENTERAL
     Route: 051
  6. PARAMOL-118 (DIHYDROCODEINE BITARTRATE/PARACETAMOL, , 0 [Suspect]
  7. PREMARIN [Suspect]
  8. VIOXX [Suspect]
     Dosage: ORAL
     Route: 048
  9. FLUCLOXACILLIN (FLUCLOXACILLIN) [Concomitant]
  10. CLAVULIN (AMOXICILLIN TRIIHYDRATE/CLAVULANATE POTASSIUM) [Concomitant]
  11. CONJUGATED ESTROGENS [Concomitant]

REACTIONS (1)
  - RETINAL HAEMORRHAGE [None]
